FAERS Safety Report 6400899-3 (Version None)
Quarter: 2009Q4

REPORT INFORMATION
  Report Type: 
  Country: None (occurrence: None)
  Receive Date: 20091009
  Receipt Date: 20090925
  Transmission Date: 20100525
  Serious: Yes (Life-Threatening, Hospitalization)
  Sender: FDA-Public Use
  Company Number: 09-PDX10-01013

PATIENT
  Age: 58 Year
  Sex: Female
  Weight: 67.9 kg

DRUGS (3)
  1. PRALATREXATE (20 MG/ML, INJECTION FOR INFUSION) [Suspect]
     Indication: ANAPLASTIC LARGE CELL LYMPHOMA T- AND NULL-CELL TYPES
     Dosage: 15 MG/M2 (15 MG/M2,1 IN 2 WK), IV
     Route: 042
     Dates: start: 20090904, end: 20090904
  2. GEMCITABINE [Suspect]
     Dosage: 600 MG/M2 (600 MG/M2, 1 IN 2 WK), IV
     Route: 042
     Dates: start: 20090904, end: 20090904
  3. ATORVASTATIN [Concomitant]

REACTIONS (14)
  - ACIDOSIS [None]
  - ANAPLASTIC LARGE CELL LYMPHOMA T- AND NULL-CELL TYPES [None]
  - ASPARTATE AMINOTRANSFERASE INCREASED [None]
  - ATELECTASIS [None]
  - BLOOD URIC ACID INCREASED [None]
  - DISEASE PROGRESSION [None]
  - DYSPNOEA [None]
  - HAEMATOCRIT DECREASED [None]
  - HAEMOGLOBIN DECREASED [None]
  - NEUTROPHIL COUNT INCREASED [None]
  - PNEUMONIA [None]
  - RENAL FAILURE ACUTE [None]
  - SUPRAVENTRICULAR TACHYCARDIA [None]
  - TUMOUR LYSIS SYNDROME [None]
